FAERS Safety Report 5588875-4 (Version None)
Quarter: 2008Q1

REPORT INFORMATION
  Report Type: 
  Country: None (occurrence: None)
  Receive Date: 20080111
  Receipt Date: 20080103
  Transmission Date: 20080703
  Serious: Yes (Other)
  Sender: FDA-Public Use
  Company Number: US-PFIZER INC-2008001399

PATIENT
  Sex: Female
  Weight: 54.4 kg

DRUGS (3)
  1. LIPITOR [Suspect]
     Indication: BLOOD CHOLESTEROL INCREASED
     Route: 048
     Dates: start: 20040101, end: 20071224
  2. COFFEE [Suspect]
  3. VITAMINS [Concomitant]

REACTIONS (5)
  - BUNDLE BRANCH BLOCK LEFT [None]
  - CARDIAC MURMUR [None]
  - HEART RATE INCREASED [None]
  - INITIAL INSOMNIA [None]
  - PALPITATIONS [None]
